FAERS Safety Report 8987218 (Version 2)
Quarter: 2013Q1

REPORT INFORMATION
  Report Type: Spontaneous
  Country: US (occurrence: US)
  Receive Date: 20121226
  Receipt Date: 20130114
  Transmission Date: 20140127
  Serious: Yes (Other)
  Sender: FDA-Public Use
  Company Number: US-ROCHE-1173437

PATIENT
  Sex: Female

DRUGS (20)
  1. XOLAIR [Suspect]
     Indication: PRODUCT USED FOR UNKNOWN INDICATION
     Route: 065
     Dates: start: 201203
  2. BEANO [Concomitant]
  3. ALPHA LIPOIC ACID [Concomitant]
  4. ZITHROMAX [Concomitant]
  5. AZELASTINE [Concomitant]
  6. NEURONTIN [Concomitant]
  7. MUCINEX D [Concomitant]
  8. GAS-X [Concomitant]
  9. CRESTOR [Concomitant]
  10. VITAMIN D3 [Concomitant]
  11. ALLEGRA [Concomitant]
  12. TRIAMCINOLON [Concomitant]
  13. RECLAST [Concomitant]
  14. NYSTATIN [Concomitant]
  15. NASONEX [Concomitant]
  16. DULERA [Concomitant]
     Route: 065
  17. MELATONIN [Concomitant]
  18. PREDNISONE [Concomitant]
     Route: 065
  19. ACETAMINOPHEN [Concomitant]
  20. AYR SALINE NASAL GEL [Concomitant]

REACTIONS (5)
  - Cataract [Unknown]
  - Blood creatine increased [Unknown]
  - Blood glucose increased [Unknown]
  - Sinusitis [Unknown]
  - Flatulence [Unknown]
